FAERS Safety Report 8312750-5 (Version None)
Quarter: 2012Q2

REPORT INFORMATION
  Report Type: 
  Country: None (occurrence: None)
  Receive Date: 20120426
  Receipt Date: 20120412
  Transmission Date: 20120825
  Serious: Yes (Hospitalization, Other)
  Sender: FDA-Public Use
  Company Number: DE-AMGEN-DEUCT2012019433

PATIENT
  Age: 79 Year
  Sex: Female
  Weight: 71.1 kg

DRUGS (5)
  1. LEFLUNOMIDE [Concomitant]
     Indication: POLYARTHRITIS
     Dosage: 20 MG, 1X/DAY
     Dates: start: 20060601
  2. ETANERCEPT [Suspect]
     Indication: PRODUCT USED FOR UNKNOWN INDICATION
     Dosage: 50 MG, QWK
     Route: 058
     Dates: start: 20110913
  3. PREDNISOLONE [Concomitant]
     Indication: POLYARTHRITIS
     Dosage: 5 MG, QD
     Dates: start: 20100301
  4. LERCANIDIPINE [Concomitant]
     Indication: HYPERTENSION
     Dosage: 20 MG, QD
  5. LEFLUNOMIDE [Concomitant]

REACTIONS (3)
  - DEHYDRATION [None]
  - OBSTRUCTIVE AIRWAYS DISORDER [None]
  - IRON DEFICIENCY ANAEMIA [None]
